FAERS Safety Report 9500735 (Version 1)
Quarter: 2013Q3

REPORT INFORMATION
  Report Type: Spontaneous
  Country: BR (occurrence: BR)
  Receive Date: 20130905
  Receipt Date: 20130905
  Transmission Date: 20140515
  Serious: Yes (Death)
  Sender: FDA-Public Use
  Company Number: BR-ASTRAZENECA-2013SE67060

PATIENT
  Age: 36254 Day
  Sex: Female

DRUGS (1)
  1. ATACAND HCT [Suspect]
     Indication: BLOOD PRESSURE INADEQUATELY CONTROLLED
     Dosage: 16/12.5 MG
     Route: 048

REACTIONS (4)
  - Death [Fatal]
  - Blood pressure abnormal [Unknown]
  - Fatigue [Unknown]
  - Drug ineffective [Unknown]
